FAERS Safety Report 8614679 (Version 2)
Quarter: 2012Q4

REPORT INFORMATION
  Report Type: 
  Country: CH (occurrence: CH)
  Receive Date: 20120614
  Receipt Date: 20120918
  Transmission Date: 20130627
  Serious: Yes (Other)
  Sender: FDA-Public Use
  Company Number: PHHY2012CH050127

PATIENT
  Sex: Female

DRUGS (2)
  1. EXJADE [Suspect]
     Indication: IRON OVERLOAD
     Dosage: 30 mg, daily since five years
     Route: 065
  2. DESFERAL [Concomitant]
     Indication: RED BLOOD CELL ABNORMALITY
     Dosage: UNK UKN, UNK
     Route: 065

REACTIONS (2)
  - Myopathy [Unknown]
  - Necrosis [Unknown]
